FAERS Safety Report 12984744 (Version 7)
Quarter: 2018Q1

REPORT INFORMATION
  Report Type: Report from Study
  Country: US (occurrence: US)
  Receive Date: 20161129
  Receipt Date: 20180118
  Transmission Date: 20180508
  Serious: Yes (Hospitalization)
  Sender: FDA-Public Use
  Company Number: US-ACTELION-A-NJ2016-146051

PATIENT
  Age: 64 Year
  Sex: Female

DRUGS (8)
  1. PLAVIX [Concomitant]
     Active Substance: CLOPIDOGREL BISULFATE
     Dosage: UNK
     Dates: start: 2014
  2. TYVASO [Concomitant]
     Active Substance: TREPROSTINIL
  3. ADEMPAS [Concomitant]
     Active Substance: RIOCIGUAT
  4. FUROSEMIDE. [Concomitant]
     Active Substance: FUROSEMIDE
     Dosage: UNK
     Dates: start: 20150508
  5. OMEPRAZOLE. [Concomitant]
     Active Substance: OMEPRAZOLE
     Dosage: UNK
     Dates: start: 2014
  6. OPSUMIT [Suspect]
     Active Substance: MACITENTAN
     Indication: PULMONARY ARTERIAL HYPERTENSION
     Dosage: 10 MG, QD
     Route: 048
     Dates: start: 20150831
  7. POTASSIUM CHLORIDE. [Concomitant]
     Active Substance: POTASSIUM CHLORIDE
     Dosage: UNK
     Dates: start: 20150916
  8. FLUTICASONE. [Concomitant]
     Active Substance: FLUTICASONE
     Dosage: UNK
     Dates: start: 20150914

REACTIONS (10)
  - Chest pain [Recovered/Resolved]
  - Renal failure [Unknown]
  - Fluid retention [Unknown]
  - Sinus congestion [Recovered/Resolved]
  - Arthralgia [Unknown]
  - Renal mass [Unknown]
  - Acute sinusitis [Recovered/Resolved]
  - Cardiac failure congestive [Unknown]
  - Swelling [Unknown]
  - Dyspnoea [Recovered/Resolved]

NARRATIVE: CASE EVENT DATE: 20151116
